FAERS Safety Report 17399006 (Version 2)
Quarter: 2020Q4

REPORT INFORMATION
  Report Type: Report from Study
  Country: US (occurrence: US)
  Receive Date: 20200210
  Receipt Date: 20201111
  Transmission Date: 20210113
  Serious: No
  Sender: FDA-Public Use
  Company Number: NVSC2020US034354

PATIENT
  Age: 33 Year
  Sex: Male

DRUGS (2)
  1. ENTRESTO [Suspect]
     Active Substance: SACUBITRIL\VALSARTAN
     Dosage: 97 MG, ONCE2SDO
     Route: 048
  2. ENTRESTO [Suspect]
     Active Substance: SACUBITRIL\VALSARTAN
     Indication: PRODUCT USED FOR UNKNOWN INDICATION
     Dosage: 24/26MG 1 TAB IN THE AM AND 49/51MG 1 TAB IN THE PM, BID
     Route: 048

REACTIONS (4)
  - Product availability issue [Unknown]
  - Product dispensing error [Unknown]
  - Product dose omission issue [Unknown]
  - Abdominal discomfort [Recovering/Resolving]
